FAERS Safety Report 6000348-3 (Version None)
Quarter: 2008Q4

REPORT INFORMATION
  Report Type: 
  Country: None (occurrence: None)
  Receive Date: 20081215
  Receipt Date: 20081203
  Transmission Date: 20090506
  Serious: Yes (Hospitalization)
  Sender: FDA-Public Use
  Company Number: RO-GILEAD-2008-0019329

PATIENT
  Sex: Male
  Weight: 57 kg

DRUGS (5)
  1. VIREAD [Suspect]
     Route: 048
     Dates: start: 20081024, end: 20081102
  2. EMTRIVA [Suspect]
     Route: 048
     Dates: start: 20081024, end: 20081102
  3. RITONAVIR [Suspect]
     Route: 048
     Dates: start: 20081024, end: 20081102
  4. TMC125 [Concomitant]
     Route: 048
     Dates: start: 20081024, end: 20081102
  5. TMC114 [Concomitant]
     Route: 048
     Dates: start: 20081024, end: 20081102

REACTIONS (1)
  - STEVENS-JOHNSON SYNDROME [None]
